FAERS Safety Report 7436742-3 (Version None)
Quarter: 2011Q2

REPORT INFORMATION
  Report Type: 
  Country: None (occurrence: None)
  Receive Date: 20110426
  Receipt Date: 20110420
  Transmission Date: 20111010
  Serious: Yes (Death, Life-Threatening)
  Sender: FDA-Public Use
  Company Number: FR-ELI_LILLY_AND_COMPANY-FR201104005830

PATIENT
  Sex: Female

DRUGS (11)
  1. TIAPRIDAL [Concomitant]
     Dosage: 100 MG, EVERY 6 HRS
     Route: 048
     Dates: start: 20110111, end: 20110213
  2. ZYPREXA [Suspect]
     Dosage: 15 MG, QD
     Route: 048
     Dates: start: 20110108, end: 20110213
  3. KEPPRA [Concomitant]
     Dosage: 500 MG, UNK
     Route: 048
  4. IMOVANE [Concomitant]
     Dosage: 7.5 MG, UNK
     Route: 048
  5. DEPAKENE [Concomitant]
     Dosage: 500 MG, UNK
     Route: 048
  6. CONTRAMAL [Concomitant]
     Route: 048
  7. SERESTA [Concomitant]
     Dosage: 50 MG, UNK
     Route: 048
  8. TERCIAN [Concomitant]
     Dosage: 1 DF, QD
     Route: 030
     Dates: start: 20100820, end: 20110213
  9. ALEPSAL [Concomitant]
  10. RIVOTRIL [Concomitant]
  11. LYSANXIA [Concomitant]
     Dosage: 40 MG, UNK
     Route: 048

REACTIONS (4)
  - CARDIO-RESPIRATORY ARREST [None]
  - PNEUMONIA ASPIRATION [None]
  - OBSTRUCTIVE AIRWAYS DISORDER [None]
  - RESPIRATORY FAILURE [None]
